FAERS Safety Report 19856759 (Version 1)
Quarter: 2021Q3

REPORT INFORMATION
  Report Type: Report from Study
  Country: IR (occurrence: TR)
  Receive Date: 20210920
  Receipt Date: 20210920
  Transmission Date: 20211014
  Serious: No
  Sender: FDA-Public Use
  Company Number: IR-JNJFOC-20210907798

PATIENT
  Sex: Female

DRUGS (1)
  1. BOSENTAN. [Suspect]
     Active Substance: BOSENTAN
     Indication: PULMONARY ARTERIAL HYPERTENSION
     Route: 048

REACTIONS (3)
  - Off label use [Unknown]
  - Contraindicated product administered [Unknown]
  - Exposure during pregnancy [Unknown]
